FAERS Safety Report 7653242-6 (Version None)
Quarter: 2011Q3

REPORT INFORMATION
  Report Type: 
  Country: None (occurrence: None)
  Receive Date: 20110803
  Receipt Date: 20110727
  Transmission Date: 20111222
  Serious: Yes (Death)
  Sender: FDA-Public Use
  Company Number: NL-CELGENEUS-114-21880-11062540

PATIENT
  Sex: Female
  Weight: 84 kg

DRUGS (4)
  1. MELPHALAN HYDROCHLORIDE [Suspect]
     Indication: MULTIPLE MYELOMA
     Dosage: 14 MILLIGRAM
     Route: 048
     Dates: start: 20110525, end: 20110528
  2. PREDNISONE [Suspect]
     Indication: MULTIPLE MYELOMA
     Dosage: 160 MILLIGRAM
     Route: 048
     Dates: start: 20110525, end: 20110528
  3. GLIMEPIRID [Concomitant]
     Dosage: 3 MILLIGRAM
     Route: 048
     Dates: start: 20080101, end: 20110617
  4. REVLIMID [Suspect]
     Indication: MULTIPLE MYELOMA
     Dosage: 10 MILLIGRAM
     Route: 048
     Dates: start: 20110525, end: 20110605

REACTIONS (1)
  - SEPSIS [None]
